FAERS Safety Report 17429634 (Version 1)
Quarter: 2020Q1

REPORT INFORMATION
  Report Type: Spontaneous
  Country: US (occurrence: US)
  Receive Date: 20200217
  Receipt Date: 20200217
  Transmission Date: 20200409
  Serious: Yes (Life-Threatening, Hospitalization, Disabling)
  Sender: FDA-Public Use
  Company Number: None

PATIENT
  Sex: Female

DRUGS (9)
  1. DUMULCENTS [Concomitant]
  2. LAMICTAL [Suspect]
     Active Substance: LAMOTRIGINE
  3. MOUNTAIN ROSE HERBS [Concomitant]
  4. NERVINES [Concomitant]
  5. YOUNGEVITY INVISION CM [Concomitant]
     Active Substance: MENTHOL
  6. ZYPREXA [Suspect]
     Active Substance: OLANZAPINE
  7. LITHIUM. [Suspect]
     Active Substance: LITHIUM
  8. DEPAKOTE [Suspect]
     Active Substance: DIVALPROEX SODIUM
  9. PROZAC [Suspect]
     Active Substance: FLUOXETINE HYDROCHLORIDE

REACTIONS (2)
  - Emotional distress [None]
  - Nervous system disorder [None]
